FAERS Safety Report 8242844-4 (Version None)
Quarter: 2012Q1

REPORT INFORMATION
  Report Type: 
  Country: None (occurrence: None)
  Receive Date: 20120329
  Receipt Date: 20120319
  Transmission Date: 20120608
  Serious: Yes (Other)
  Sender: FDA-Public Use
  Company Number: AT-JNJFOC-20120309128

PATIENT
  Age: 44 Year
  Sex: Male

DRUGS (1)
  1. XEPLION [Suspect]
     Indication: PRODUCT USED FOR UNKNOWN INDICATION
     Route: 030
     Dates: start: 20111128

REACTIONS (4)
  - HALLUCINATION [None]
  - CONFUSIONAL STATE [None]
  - PSYCHOTIC DISORDER [None]
  - HYPERVIGILANCE [None]
